FAERS Safety Report 4474136-3 (Version None)
Quarter: 2004Q4

REPORT INFORMATION
  Report Type: 
  Country: None (occurrence: None)
  Receive Date: 20041013
  Receipt Date: 20041013
  Transmission Date: 20050328
  Serious: Yes (Hospitalization)
  Sender: FDA-Public Use
  Company Number: None

PATIENT
  Age: 76 Year
  Sex: Female
  Weight: 57 kg

DRUGS (2)
  1. IRESSA [Suspect]
     Indication: LUNG NEOPLASM MALIGNANT
     Dosage: 250 MG EVERY DAY PO
     Route: 048
     Dates: start: 20040310, end: 20040928
  2. FASLODEX [Suspect]
     Indication: LUNG NEOPLASM MALIGNANT
     Dosage: 250 MG MONTHLY IM
     Route: 030
     Dates: start: 20040310, end: 20040825

REACTIONS (1)
  - CEREBROVASCULAR ACCIDENT [None]
